FAERS Safety Report 12328699 (Version 1)
Quarter: 2016Q2

REPORT INFORMATION
  Report Type: Spontaneous
  Country: US (occurrence: US)
  Receive Date: 20160503
  Receipt Date: 20160503
  Transmission Date: 20160815
  Serious: No
  Sender: FDA-Public Use
  Company Number: US-BEH-2015050217

PATIENT
  Sex: Male
  Weight: 112 kg

DRUGS (22)
  1. HIZENTRA [Suspect]
     Active Substance: HUMAN IMMUNOGLOBULIN G
     Indication: IMMUNODEFICIENCY COMMON VARIABLE
     Route: 058
  2. EPIPEN AUTOINJECTOR [Concomitant]
  3. CEPHALEXIN 250 MG TABLET [Concomitant]
  4. CYMBALTA 60 MG CAPSULE [Concomitant]
  5. DIPHENHYDRAMINE. [Concomitant]
     Active Substance: DIPHENHYDRAMINE
  6. PREDNISONE 5MG TABLET [Concomitant]
  7. LIPITOR 20MG TABLET [Concomitant]
  8. GENTAMICIN 0.1% OINTMENT [Concomitant]
  9. FLOVENT HFA 44 MCG INHALER [Concomitant]
  10. LYRICA 200MG CAPSULE [Concomitant]
  11. ALBUTEROL 90MCG INHALER [Concomitant]
  12. HIZENTRA [Suspect]
     Active Substance: HUMAN IMMUNOGLOBULIN G
     Route: 058
  13. MUPIROCIN 2% OINTMENT [Concomitant]
     Active Substance: MUPIROCIN
  14. ENDOCET [Concomitant]
     Active Substance: ACETAMINOPHEN\OXYCODONE HYDROCHLORIDE
  15. DOXYCYCLINE HYC DR 100 MG TAB [Concomitant]
  16. RESTASIS 0.05% EYE EMULSION [Concomitant]
  17. CYCLOBENZAPRINE 10 MG TABLET [Concomitant]
  18. ZYRTEC [Concomitant]
     Active Substance: CETIRIZINE HYDROCHLORIDE
  19. FLUNISOLIDE 0.025% SPRAY [Concomitant]
  20. TREGRETOL 100 MG TABLET CHEW [Concomitant]
  21. PRILOSEC OTC 20MG [Concomitant]
  22. LYRICA 15MG TABLET [Concomitant]

REACTIONS (2)
  - Drug dose omission [Unknown]
  - Gastric disorder [Unknown]
